FAERS Safety Report 5772671-9 (Version None)
Quarter: 2008Q2

REPORT INFORMATION
  Report Type: 
  Country: None (occurrence: None)
  Receive Date: 20080613
  Receipt Date: 20080604
  Transmission Date: 20081010
  Serious: Yes (Hospitalization)
  Sender: FDA-Public Use
  Company Number: CA-BOEHRINGER INGELHEIM GMBH, GERMANY-2008-CN-00241CN

PATIENT
  Sex: Female

DRUGS (11)
  1. AGGRENOX [Suspect]
     Route: 048
     Dates: start: 20080427, end: 20080531
  2. DULCOLAX [Suspect]
  3. COLACE [Concomitant]
  4. METOPROLOL [Concomitant]
  5. CRESTOR [Concomitant]
  6. TYLENOL [Concomitant]
  7. ASPIRIN [Concomitant]
  8. SODIUM PHOSPHATES [Concomitant]
  9. GLYCERIN [Concomitant]
  10. MILK OF MAGNESIA [Concomitant]
  11. HUMULIN R [Concomitant]

REACTIONS (1)
  - RENAL FAILURE ACUTE [None]
